FAERS Safety Report 8461662-5 (Version None)
Quarter: 2012Q2

REPORT INFORMATION
  Report Type: 
  Country: None (occurrence: None)
  Receive Date: 20120625
  Receipt Date: 20120620
  Transmission Date: 20120825
  Serious: Yes (Hospitalization)
  Sender: FDA-Public Use
  Company Number: US-AMGEN-USASP2012034153

PATIENT
  Age: 37 Year
  Sex: Male

DRUGS (1)
  1. ENBREL [Suspect]
     Indication: PSORIATIC ARTHROPATHY
     Dosage: 25 MG, UNK
     Dates: start: 20010501

REACTIONS (10)
  - EAR INFECTION [None]
  - OTORRHOEA [None]
  - BONE EROSION [None]
  - MUSCULOSKELETAL PAIN [None]
  - ROTATOR CUFF REPAIR [None]
  - INFECTION [None]
  - TENDON RUPTURE [None]
  - POST PROCEDURAL INFECTION [None]
  - LUNG INFECTION [None]
  - UNEVALUABLE EVENT [None]
